FAERS Safety Report 17876409 (Version 3)
Quarter: 2020Q3

REPORT INFORMATION
  Report Type: Report from Study
  Country: DE (occurrence: DE)
  Receive Date: 20200609
  Receipt Date: 20200715
  Transmission Date: 20201103
  Serious: Yes (Hospitalization)
  Sender: FDA-Public Use
  Company Number: DE-JNJFOC-20200419590

PATIENT
  Age: 8 Decade
  Sex: Female
  Weight: 83 kg

DRUGS (18)
  1. TRABECTEDIN [Suspect]
     Active Substance: TRABECTEDIN
     Indication: FALLOPIAN TUBE CANCER
  2. PANTOZOL [Concomitant]
     Active Substance: PANTOPRAZOLE SODIUM
     Route: 065
  3. LACTATED RINGERS SOLUTION [Concomitant]
     Active Substance: CALCIUM CHLORIDE\POTASSIUM CHLORIDE\SODIUM CHLORIDE\SODIUM LACTATE
     Dosage: OR JONO 500 ML I.V
     Route: 042
  4. ADDEL N                            /01412701/ [Concomitant]
     Active Substance: ELECTROLYTES NOS\MINERALS
     Dosage: ON MONDAYS
     Route: 065
  5. DOXORUBICIN HYDROCHLORIDE. [Suspect]
     Active Substance: DOXORUBICIN HYDROCHLORIDE
     Indication: OVARIAN CANCER RECURRENT
     Route: 042
     Dates: start: 20200401, end: 20200401
  6. DOXORUBICIN HYDROCHLORIDE. [Suspect]
     Active Substance: DOXORUBICIN HYDROCHLORIDE
     Indication: FALLOPIAN TUBE CANCER
  7. L?THYROXIN [Concomitant]
     Active Substance: LEVOTHYROXINE SODIUM
     Dosage: FOR 1 HOUR
     Route: 042
  8. ONDANSETRON [Concomitant]
     Active Substance: ONDANSETRON
     Route: 065
  9. TRABECTEDIN [Suspect]
     Active Substance: TRABECTEDIN
     Indication: MALIGNANT PERITONEAL NEOPLASM
  10. IMODIUM [Concomitant]
     Active Substance: LOPERAMIDE HYDROCHLORIDE
     Route: 065
  11. NUTRIFLEX SPECIAL [Concomitant]
     Dosage: VIA PORT
     Route: 050
  12. KALINOR                            /00031402/ [Concomitant]
     Active Substance: POTASSIUM CHLORIDE
     Dosage: PROLONGED RELEASE; DEPENDING ON POTASSIUM VALUE
     Route: 065
  13. DOXORUBICIN HYDROCHLORIDE. [Suspect]
     Active Substance: DOXORUBICIN HYDROCHLORIDE
     Indication: MALIGNANT PERITONEAL NEOPLASM
  14. FRAGMIN [Concomitant]
     Active Substance: DALTEPARIN SODIUM
     Dosage: PRE?FILLED SYRINGE
     Route: 058
  15. CANDESARTAN. [Concomitant]
     Active Substance: CANDESARTAN
     Route: 065
  16. TRABECTEDIN [Suspect]
     Active Substance: TRABECTEDIN
     Indication: OVARIAN CANCER RECURRENT
     Route: 042
     Dates: start: 20200401, end: 20200401
  17. CERNEVIT [Concomitant]
     Active Substance: VITAMINS
     Dosage: ON MONDAYS
     Route: 065
  18. CHOLESTYRAMINE. [Concomitant]
     Active Substance: CHOLESTYRAMINE
     Dosage: BILE ACID SEQUESTRANTS
     Route: 065

REACTIONS (2)
  - Acute kidney injury [Recovered/Resolved]
  - Ileus [Recovered/Resolved]

NARRATIVE: CASE EVENT DATE: 20200413
